FAERS Safety Report 10409254 (Version 1)
Quarter: 2014Q2

REPORT INFORMATION
  Report Type: Spontaneous
  Country: US (occurrence: None)
  Receive Date: 20140604
  Receipt Date: 20140604
  Transmission Date: 20141212
  Serious: Yes (Other)
  Sender: FDA-Public Use
  Company Number: 163-POMAL-14032457

PATIENT
  Age: 70 Year
  Sex: Female
  Weight: 88.4 kg

DRUGS (8)
  1. POMALYST (POMALIDOMIDE) (1 MILLIGRAM, CAPSULES) [Suspect]
     Indication: PLASMA CELL MYELOMA
     Dosage: 21 IN 28 D
     Route: 048
     Dates: start: 201302
  2. OXYBUTYNIN CHLORIDE (OXYBUTYNIN HYDROCHLORIDE)) [Concomitant]
  3. MAGNESIUM [Concomitant]
  4. ZOLPIDEM TARTRATE [Concomitant]
  5. AMLODIPINE BESYLATE (AMLODIPINE BESILATE) [Concomitant]
  6. GABAPENTIN [Concomitant]
  7. DEXAMETHASONE [Concomitant]
  8. OMEPRAZOLE [Concomitant]

REACTIONS (2)
  - Nasopharyngitis [None]
  - Cough [None]
